FAERS Safety Report 14858143 (Version 1)
Quarter: 2018Q2

REPORT INFORMATION
  Report Type: Spontaneous
  Country: FR (occurrence: FR)
  Receive Date: 20180508
  Receipt Date: 20180508
  Transmission Date: 20180711
  Serious: Yes (Other)
  Sender: FDA-Public Use
  Company Number: FR-MERCK KGAA-2047352

PATIENT
  Age: 61 Year
  Sex: Female

DRUGS (1)
  1. NOVOTHYROX [Suspect]
     Active Substance: LEVOTHYROXINE SODIUM
     Indication: POST PROCEDURAL HYPOTHYROIDISM
     Dates: start: 201704

REACTIONS (13)
  - Fatigue [None]
  - Loss of personal independence in daily activities [None]
  - Headache [Recovering/Resolving]
  - Asthenia [Recovering/Resolving]
  - General physical health deterioration [None]
  - Muscle spasms [Recovering/Resolving]
  - Alopecia [Recovering/Resolving]
  - Suicidal ideation [None]
  - Depression [None]
  - Disturbance in attention [None]
  - Anxiety [Recovering/Resolving]
  - Depressed mood [Recovering/Resolving]
  - Diarrhoea [None]

NARRATIVE: CASE EVENT DATE: 2017
